FAERS Safety Report 14554375 (Version 1)
Quarter: 2018Q1

REPORT INFORMATION
  Report Type: Report from Study
  Country: US (occurrence: US)
  Receive Date: 20180220
  Receipt Date: 20180220
  Transmission Date: 20180509
  Serious: Yes (Hospitalization, Other)
  Sender: FDA-Public Use
  Company Number: US-SEBELA IRELAND LIMITED-2018SEB00022

PATIENT
  Sex: Male
  Weight: 86.17 kg

DRUGS (5)
  1. IMURAN [Suspect]
     Active Substance: AZATHIOPRINE
     Indication: CROHN^S DISEASE
     Dosage: UNK
  2. HUMIRA [Suspect]
     Active Substance: ADALIMUMAB
     Indication: CROHN^S DISEASE
     Dosage: 40 MG, 2X/MONTH
     Route: 058
     Dates: start: 201503, end: 201709
  3. HUMIRA [Suspect]
     Active Substance: ADALIMUMAB
     Dosage: 40 MG, 1X/WEEK
     Route: 058
     Dates: start: 201709
  4. CENTRUM SILVER [Concomitant]
     Active Substance: MINERALS\VITAMINS
  5. IMURAN [Suspect]
     Active Substance: AZATHIOPRINE
     Dosage: UNK
     Dates: start: 2016

REACTIONS (11)
  - Rectal haemorrhage [Recovered/Resolved]
  - Blood urine present [Recovered/Resolved]
  - Procedural haemorrhage [Recovered/Resolved]
  - Postoperative adhesion [Unknown]
  - Depression [Recovered/Resolved]
  - Basal cell carcinoma [Recovered/Resolved]
  - Gastrointestinal inflammation [Recovering/Resolving]
  - Bladder obstruction [Recovered/Resolved]
  - Nephrolithiasis [Recovered/Resolved]
  - Loss of consciousness [Recovered/Resolved]
  - Drug level decreased [Unknown]

NARRATIVE: CASE EVENT DATE: 2015
